FAERS Safety Report 11030682 (Version 1)
Quarter: 2015Q2

REPORT INFORMATION
  Report Type: Spontaneous
  Country: US (occurrence: US)
  Receive Date: 20150415
  Receipt Date: 20150415
  Transmission Date: 20150821
  Serious: No
  Sender: FDA-Public Use
  Company Number: US-BAYER-2015-134650

PATIENT
  Age: 64 Year
  Sex: Female
  Weight: 136 kg

DRUGS (1)
  1. CLARITIN REDITABS [Suspect]
     Active Substance: LORATADINE
     Indication: BONE PAIN
     Dosage: 1 DF, QD
     Route: 048
     Dates: start: 201504

REACTIONS (1)
  - Medication error [None]

NARRATIVE: CASE EVENT DATE: 201504
